FAERS Safety Report 12110893 (Version 3)
Quarter: 2016Q2

REPORT INFORMATION
  Report Type: Report from Study
  Country: US (occurrence: US)
  Receive Date: 20160224
  Receipt Date: 20160504
  Transmission Date: 20160815
  Serious: Yes (Hospitalization)
  Sender: FDA-Public Use
  Company Number: US-JNJFOC-20160218709

PATIENT
  Age: 81 Year
  Sex: Male
  Weight: 98.88 kg

DRUGS (15)
  1. REMICADE [Suspect]
     Active Substance: INFLIXIMAB
     Indication: COLITIS ULCERATIVE
     Route: 042
     Dates: start: 20160106, end: 20160116
  2. COLESTID [Concomitant]
     Active Substance: COLESTIPOL HYDROCHLORIDE
     Route: 065
  3. MUCINEX [Concomitant]
     Active Substance: GUAIFENESIN
     Route: 065
  4. METFORMIN [Concomitant]
     Active Substance: METFORMIN HYDROCHLORIDE
     Route: 065
  5. VERAPAMIL [Concomitant]
     Active Substance: VERAPAMIL HYDROCHLORIDE
     Route: 065
  6. VITAMIN B12 [Concomitant]
     Active Substance: CYANOCOBALAMIN
     Route: 065
  7. OMEPRAZOLE. [Concomitant]
     Active Substance: OMEPRAZOLE
     Route: 065
  8. POTASSIUM [Concomitant]
     Active Substance: POTASSIUM
     Route: 065
  9. FLECAINIDE [Concomitant]
     Active Substance: FLECAINIDE
     Route: 065
  10. PRADAXA [Concomitant]
     Active Substance: DABIGATRAN ETEXILATE MESYLATE
     Route: 065
  11. MAG-OX [Concomitant]
     Active Substance: MAGNESIUM OXIDE
     Route: 065
  12. REMICADE [Suspect]
     Active Substance: INFLIXIMAB
     Indication: COLITIS ULCERATIVE
     Route: 042
     Dates: start: 20130403
  13. FUROSEMIDE. [Concomitant]
     Active Substance: FUROSEMIDE
     Route: 065
  14. ROBITUSSIN (GUAIFENESIN) [Concomitant]
     Active Substance: GUAIFENESIN
     Route: 065
  15. REMICADE [Suspect]
     Active Substance: INFLIXIMAB
     Indication: COLITIS ULCERATIVE
     Route: 042
     Dates: start: 20151103

REACTIONS (5)
  - Weight decreased [Recovered/Resolved]
  - Pneumonia [Recovering/Resolving]
  - Adverse drug reaction [Not Recovered/Not Resolved]
  - Anaemia [Recovering/Resolving]
  - Oral herpes [Unknown]

NARRATIVE: CASE EVENT DATE: 201512
